FAERS Safety Report 6726866-8 (Version None)
Quarter: 2010Q2

REPORT INFORMATION
  Report Type: 
  Country: None (occurrence: None)
  Receive Date: 20100517
  Receipt Date: 20100510
  Transmission Date: 20101027
  Serious: Yes (Hospitalization, Disabling)
  Sender: FDA-Public Use
  Company Number: US-BIOGENIDEC-2010BI015513

PATIENT
  Age: 56 Year
  Sex: Male

DRUGS (5)
  1. TYSABRI [Suspect]
     Indication: MULTIPLE SCLEROSIS
     Route: 042
     Dates: start: 20090916
  2. PROVIGIL [Concomitant]
     Indication: FATIGUE
     Dates: start: 20090128
  3. VICODIN [Concomitant]
     Indication: BACK PAIN
     Dates: start: 20100423
  4. BACLOFEN [Concomitant]
     Indication: MUSCLE SPASTICITY
  5. XANAX [Concomitant]
     Indication: ANXIETY

REACTIONS (1)
  - ROCKY MOUNTAIN SPOTTED FEVER [None]
